FAERS Safety Report 15172661 (Version 1)
Quarter: 2018Q3

REPORT INFORMATION
  Report Type: Spontaneous
  Country: US (occurrence: US)
  Receive Date: 20180720
  Receipt Date: 20180720
  Transmission Date: 20181010
  Serious: No
  Sender: FDA-Public Use
  Company Number: US-SEPTODONT-201704112

PATIENT
  Age: 3 Decade
  Sex: Male

DRUGS (2)
  1. ORAVERSE [Suspect]
     Active Substance: PHENTOLAMINE MESYLATE
     Indication: ANAESTHESIA REVERSAL
     Dosage: INFILTRATION POST?OPERATIVELY ADJACENT TO TOOTH #9 IN THE MUCCOBUCCAL FOLD UNDER THE NASAL FLOOR
     Route: 004
     Dates: start: 20170612, end: 20170612
  2. LIDOCAINE HYDROCHLORIDE 2% WITH EPINEPHRINE 1:100,000 INJECTION [Concomitant]
     Active Substance: EPINEPHRINE\LIDOCAINE HYDROCHLORIDE
     Dosage: INFILTRATIVE TECHNIQUE ADJACENT TO TOOTH #9 IN THE MUCCOBUCCAL FOLD UNDER THE NASAL FLOOR
     Route: 004
     Dates: start: 20170612, end: 20170612

REACTIONS (2)
  - Swelling face [Recovering/Resolving]
  - Panic reaction [Recovering/Resolving]

NARRATIVE: CASE EVENT DATE: 20170612
